FAERS Safety Report 9882585 (Version 1)
Quarter: 2014Q1

REPORT INFORMATION
  Report Type: Report from Study
  Country: US (occurrence: US)
  Receive Date: 20140207
  Receipt Date: 20140207
  Transmission Date: 20141002
  Serious: Yes (Hospitalization)
  Sender: FDA-Public Use
  Company Number: US-ABBVIE-14P-163-1196225-00

PATIENT
  Age: 48 Year
  Sex: Male
  Weight: 122.58 kg

DRUGS (17)
  1. HUMIRA [Suspect]
     Indication: PSORIASIS
     Route: 058
     Dates: start: 2005, end: 201311
  2. CLOPIDOGREL [Concomitant]
     Indication: THROMBOSIS PROPHYLAXIS
     Dates: start: 2012
  3. CARVEDILOL [Concomitant]
     Indication: MYOCARDIAL INFARCTION
     Dates: start: 2012
  4. ATORVASTATIN [Concomitant]
     Indication: BLOOD CHOLESTEROL INCREASED
  5. FUROSEMIDE [Concomitant]
     Indication: FLUID RETENTION
  6. KLOR CON [Concomitant]
     Indication: BLOOD POTASSIUM DECREASED
  7. CITALOPRAM [Concomitant]
     Indication: DEPRESSION
  8. ABILIFY [Concomitant]
     Indication: DEPRESSION
  9. AMITRIPTYLINE [Concomitant]
     Indication: DEPRESSION
  10. VALSARTAN [Concomitant]
     Indication: HYPERTENSION
  11. AMLODIPINE [Concomitant]
     Indication: HYPERTENSION
  12. GABAPENTIN [Concomitant]
     Indication: BACK PAIN
  13. OMEPRAZOLE [Concomitant]
     Indication: ABDOMINAL DISCOMFORT
  14. DICLOFENAC [Concomitant]
     Indication: INFLAMMATION
  15. OXYCODONE [Concomitant]
     Indication: PAIN
  16. OPANA [Concomitant]
     Indication: PAIN
  17. BETAMETHASONE [Concomitant]
     Indication: PSORIASIS
     Route: 061

REACTIONS (11)
  - Muscle strain [Recovered/Resolved]
  - Ventricular tachycardia [Recovered/Resolved]
  - Chest pain [Recovered/Resolved]
  - Myocardial infarction [Recovered/Resolved]
  - Psoriasis [Not Recovered/Not Resolved]
  - Injection site pain [Not Recovered/Not Resolved]
  - Bronchitis [Recovered/Resolved]
  - Cough [Recovered/Resolved]
  - Tendon rupture [Recovering/Resolving]
  - Arthralgia [Recovering/Resolving]
  - Arthralgia [Recovering/Resolving]
